FAERS Safety Report 9092934 (Version 1)
Quarter: 2013Q1

REPORT INFORMATION
  Report Type: Report from Study
  Country: US (occurrence: US)
  Receive Date: 20130201
  Receipt Date: 20130201
  Transmission Date: 20140127
  Serious: No
  Sender: FDA-Public Use
  Company Number: US-ABBOTT-12P-163-1026766-00

PATIENT
  Age: 42 Year
  Sex: Female

DRUGS (4)
  1. HUMIRA [Suspect]
     Indication: PSORIASIS
     Route: 058
     Dates: start: 20121212, end: 20121212
  2. HUMIRA [Suspect]
     Dates: start: 20121219, end: 20121219
  3. HUMIRA [Suspect]
     Route: 058
  4. RECLIPSEN [Concomitant]
     Indication: CONTRACEPTION
     Dosage: 1 DAILY
     Route: 048

REACTIONS (2)
  - Rash papular [Not Recovered/Not Resolved]
  - Injection site pruritus [Not Recovered/Not Resolved]
